APPROVED DRUG PRODUCT: THEOPHYL
Active Ingredient: THEOPHYLLINE
Strength: 100MG
Dosage Form/Route: TABLET, CHEWABLE;ORAL
Application: A086506 | Product #001
Applicant: ORTHO MCNEIL PHARMACEUTICAL INC
Approved: Sep 12, 1985 | RLD: No | RS: No | Type: DISCN